FAERS Safety Report 7300744-8 (Version None)
Quarter: 2011Q1

REPORT INFORMATION
  Report Type: 
  Country: None (occurrence: None)
  Receive Date: 20110218
  Receipt Date: 20100416
  Transmission Date: 20110831
  Serious: Yes (Hospitalization)
  Sender: FDA-Public Use
  Company Number: US-RANBAXY-2010US-33806

PATIENT

DRUGS (22)
  1. POTASSIUM CHLORIDE [Concomitant]
     Indication: HYPOKALAEMIA
     Route: 065
  2. URSODIOL [Concomitant]
     Indication: CHOLELITHIASIS
     Route: 065
  3. ACYCLOVIR PLACEBO TABLETS [Suspect]
     Indication: ANTIVIRAL PROPHYLAXIS
     Dosage: 400 MG, BID
     Route: 048
     Dates: start: 20080130, end: 20080528
  4. NYSTATIN SS [Concomitant]
     Indication: ANTIFUNGAL PROPHYLAXIS
     Route: 065
  5. OSCAL-D [Concomitant]
     Indication: OSTEOPENIA
     Route: 065
  6. MARIBAVIR PLACEBO TABLETS [Suspect]
     Indication: ANTIVIRAL PROPHYLAXIS
     Dosage: 100 MG, BID
     Route: 048
     Dates: start: 20080130, end: 20080528
  7. ASPIRIN [Concomitant]
     Indication: THROMBOSIS PROPHYLAXIS
     Route: 065
  8. POTASSIUM [Concomitant]
     Indication: HYPOKALAEMIA
     Route: 065
  9. GANCICLOVIR [Suspect]
     Indication: ANTIVIRAL PROPHYLAXIS
     Dosage: 1000 MG, TID
     Route: 048
     Dates: start: 20080130, end: 20080528
  10. COLACE [Concomitant]
     Indication: CONSTIPATION
     Route: 065
  11. MULTI-VITAMIN [Concomitant]
     Indication: OSTEOPOROSIS PROPHYLAXIS
     Route: 065
  12. NOVOLOG [Concomitant]
     Indication: TYPE 2 DIABETES MELLITUS
     Route: 065
  13. TACROLIMUS [Concomitant]
     Indication: TRANSPLANT REJECTION
     Route: 065
  14. AMLODIPINE [Concomitant]
     Indication: HYPERTENSION
     Route: 065
  15. BACTRIM DS [Concomitant]
     Indication: ANTIBIOTIC PROPHYLAXIS
     Route: 065
  16. ESOMEPRAZOLE [Concomitant]
     Indication: GASTROOESOPHAGEAL REFLUX DISEASE
     Route: 065
  17. PREDNISONE [Concomitant]
     Indication: TRANSPLANT REJECTION
     Route: 065
  18. SYNTHROID [Concomitant]
     Indication: HYPOTHYROIDISM
     Route: 065
  19. CELLCEPT [Concomitant]
     Indication: TRANSPLANT REJECTION
     Route: 065
  20. FUROSEMIDE [Concomitant]
     Indication: OEDEMA
     Route: 065
  21. LANTUS [Concomitant]
     Indication: TYPE 2 DIABETES MELLITUS
     Route: 065
  22. SEROQUEL [Concomitant]
     Indication: INSOMNIA
     Route: 065

REACTIONS (2)
  - CYTOMEGALOVIRUS INFECTION [None]
  - DRUG INEFFECTIVE [None]
